FAERS Safety Report 21484420 (Version 1)
Quarter: 2022Q4

REPORT INFORMATION
  Report Type: Spontaneous
  Country: GB (occurrence: GB)
  Receive Date: 20221020
  Receipt Date: 20221020
  Transmission Date: 20230112
  Serious: Yes (Other)
  Sender: FDA-Public Use
  Company Number: None

PATIENT
  Age: 21 Year
  Sex: Female

DRUGS (1)
  1. FLUOXETINE [Suspect]
     Active Substance: FLUOXETINE HYDROCHLORIDE
     Indication: Depression
     Dosage: DOSE: 20
     Dates: start: 20200407, end: 20210708

REACTIONS (6)
  - Sexual dysfunction [Not Recovered/Not Resolved]
  - Anhedonia [Not Recovered/Not Resolved]
  - Visual snow syndrome [Not Recovered/Not Resolved]
  - Insomnia [Recovered/Resolved with Sequelae]
  - Rosacea [Recovered/Resolved with Sequelae]
  - Dry skin [Recovered/Resolved with Sequelae]

NARRATIVE: CASE EVENT DATE: 20210601
